FAERS Safety Report 18378586 (Version 1)
Quarter: 2020Q4

REPORT INFORMATION
  Report Type: Spontaneous
  Country: US (occurrence: US)
  Receive Date: 20201013
  Receipt Date: 20201013
  Transmission Date: 20210114
  Serious: Yes (Other)
  Sender: FDA-Public Use
  Company Number: US-SA-2020SA282263

PATIENT

DRUGS (1)
  1. ZANTAC [Suspect]
     Active Substance: RANITIDINE HYDROCHLORIDE
     Dosage: ONE WEEK PER MONTH FOR OVER THREE YEARS
     Dates: start: 2002

REACTIONS (2)
  - Plasma cell myeloma [Unknown]
  - Anxiety [Unknown]

NARRATIVE: CASE EVENT DATE: 2018
